FAERS Safety Report 10191421 (Version 1)
Quarter: 2014Q2

REPORT INFORMATION
  Report Type: Spontaneous
  Country: US (occurrence: None)
  Receive Date: 20140522
  Receipt Date: 20140522
  Transmission Date: 20141212
  Serious: Yes (Hospitalization)
  Sender: FDA-Public Use
  Company Number: None

PATIENT
  Age: 74 Year
  Sex: Female
  Weight: 99.34 kg

DRUGS (2)
  1. CLARITHROMYCIN 500MG [Suspect]
     Indication: HELICOBACTER GASTRITIS
     Dosage: 1 TABLET BID ORAL
     Route: 048
     Dates: start: 20140416, end: 20140423
  2. METRONIDAZOLE 500MG [Suspect]
     Indication: HELICOBACTER GASTRITIS
     Dosage: 1 TABLET BID ORAL
     Route: 048
     Dates: start: 20140416, end: 20140423

REACTIONS (3)
  - Swelling face [None]
  - Local swelling [None]
  - Asthma [None]
